FAERS Safety Report 10406953 (Version 2)
Quarter: 2014Q4

REPORT INFORMATION
  Report Type: Report from Study
  Country: DE (occurrence: DE)
  Receive Date: 20140825
  Receipt Date: 20141031
  Transmission Date: 20150528
  Serious: Yes (Other)
  Sender: FDA-Public Use
  Company Number: DE-ABBVIE-14K-062-1274071-00

PATIENT
  Age: 35 Year
  Sex: Female
  Weight: 66 kg

DRUGS (6)
  1. THYRONAJOD [Concomitant]
     Active Substance: LEVOTHYROXINE SODIUM\POTASSIUM IODIDE
     Dates: start: 2014
  2. HUMIRA [Suspect]
     Active Substance: ADALIMUMAB
     Route: 058
     Dates: start: 2014
  3. HUMIRA [Suspect]
     Active Substance: ADALIMUMAB
     Indication: CROHN^S DISEASE
     Route: 058
     Dates: start: 20120416, end: 2014
  4. THYRONAJOD [Concomitant]
     Active Substance: LEVOTHYROXINE SODIUM\POTASSIUM IODIDE
     Indication: PRODUCT USED FOR UNKNOWN INDICATION
     Dates: end: 2014
  5. MUCOFALK [Concomitant]
     Indication: PRODUCT USED FOR UNKNOWN INDICATION
  6. PREDNISOLONE. [Concomitant]
     Active Substance: PREDNISOLONE
     Indication: PRODUCT USED FOR UNKNOWN INDICATION
     Dosage: 1-0-0
     Dates: start: 20140701, end: 20140810

REACTIONS (7)
  - Crohn^s disease [Recovering/Resolving]
  - General physical health deterioration [Recovering/Resolving]
  - Haemorrhoids [Recovered/Resolved]
  - Acrochordon [Recovered/Resolved]
  - Abdominal pain [Recovering/Resolving]
  - Frequent bowel movements [Recovering/Resolving]
  - Stress at work [Unknown]

NARRATIVE: CASE EVENT DATE: 2014
